FAERS Safety Report 18998093 (Version 1)
Quarter: 2021Q1

REPORT INFORMATION
  Report Type: Spontaneous
  Country: US (occurrence: US)
  Receive Date: 20210311
  Receipt Date: 20210311
  Transmission Date: 20210420
  Serious: No
  Sender: FDA-Public Use
  Company Number: US-PFIZER INC-2021195826

PATIENT
  Age: 71 Year
  Sex: Female
  Weight: 65.77 kg

DRUGS (2)
  1. LETROZOLE. [Concomitant]
     Active Substance: LETROZOLE
     Indication: NEOPLASM
     Dosage: 2.5 MG, 1X/DAY(2.5MG; TAKE ONCE DAILY BY MOUTH)
     Route: 048
     Dates: start: 202101
  2. IBRANCE [Suspect]
     Active Substance: PALBOCICLIB
     Indication: NEOPLASM MALIGNANT
     Dosage: 125 MG, CYCLIC(125MG; TAKE ONE DAILY BY MOUTH FOR 21 DAYS AND OFF 7 DAYS)
     Route: 048
     Dates: start: 20210114

REACTIONS (1)
  - Rash [Not Recovered/Not Resolved]

NARRATIVE: CASE EVENT DATE: 20210211
